FAERS Safety Report 8466774 (Version 3)
Quarter: 2014Q1

REPORT INFORMATION
  Report Type: Spontaneous
  Country: US (occurrence: US)
  Receive Date: 20120320
  Receipt Date: 20140327
  Transmission Date: 20141002
  Serious: Yes (Hospitalization)
  Sender: FDA-Public Use
  Company Number: US-BAYER-2012-023898

PATIENT
  Age: 30 Year
  Sex: Female

DRUGS (6)
  1. YAZ [Suspect]
     Indication: ACNE
     Dosage: UNK
     Route: 048
     Dates: start: 200803, end: 2009
  2. YASMIN [Suspect]
     Indication: ACNE
     Dosage: UNK
     Route: 048
     Dates: start: 200803, end: 2009
  3. CELEXA [Concomitant]
     Dosage: UNK
     Dates: start: 20060112
  4. PAXIL [Concomitant]
     Dosage: 20 MG, DAILY
     Dates: start: 20060126
  5. FLEXERIL [Concomitant]
     Dosage: 10 MG, UNK
     Dates: start: 20060205
  6. PROZAC [Concomitant]
     Dosage: UNK
     Dates: start: 20060403

REACTIONS (7)
  - Cholecystectomy [None]
  - Pain [None]
  - Injury [None]
  - General physical health deterioration [None]
  - Anxiety [None]
  - Anhedonia [None]
  - Emotional distress [None]
